FAERS Safety Report 12383020 (Version 1)
Quarter: 2016Q2

REPORT INFORMATION
  Report Type: Spontaneous
  Country: US (occurrence: US)
  Receive Date: 20160518
  Receipt Date: 20160518
  Transmission Date: 20160815
  Serious: No
  Sender: FDA-Public Use
  Company Number: US-WARNER CHILCOTT, LLC-1052427

PATIENT
  Age: 33 Year
  Sex: Female
  Weight: 59.09 kg

DRUGS (1)
  1. MINASTRIN 24 FE [Suspect]
     Active Substance: ETHINYL ESTRADIOL\NORETHINDRONE ACETATE
     Indication: CONTRACEPTION
     Route: 048
     Dates: start: 20160424, end: 20160426

REACTIONS (5)
  - Diarrhoea [Unknown]
  - Constipation [Unknown]
  - Abdominal distension [Unknown]
  - Bone pain [Unknown]
  - Lethargy [Unknown]
